FAERS Safety Report 6660718-7 (Version None)
Quarter: 2010Q1

REPORT INFORMATION
  Report Type: 
  Country: None (occurrence: None)
  Receive Date: 20100331
  Receipt Date: 20100316
  Transmission Date: 20100710
  Serious: Yes (Other)
  Sender: FDA-Public Use
  Company Number: BY-BAYER-201020331GPV

PATIENT
  Age: 60 Year
  Sex: Female
  Weight: 67 kg

DRUGS (4)
  1. ASPIRIN [Suspect]
     Indication: DRUG USE FOR UNKNOWN INDICATION
     Dosage: TOTAL DAILY DOSE: 100 MG
     Route: 048
     Dates: start: 20090206
  2. SINATOR [Concomitant]
  3. LISINOPRIL [Concomitant]
  4. NORMODIPIN [Concomitant]

REACTIONS (2)
  - ARRHYTHMIA [None]
  - TRANSIENT ISCHAEMIC ATTACK [None]
